FAERS Safety Report 19183730 (Version 1)
Quarter: 2021Q2

REPORT INFORMATION
  Report Type: Spontaneous
  Country: US (occurrence: US)
  Receive Date: 20210426
  Receipt Date: 20210426
  Transmission Date: 20210717
  Serious: Yes (Life-Threatening)
  Sender: FDA-Public Use
  Company Number: None

PATIENT
  Age: 68 Year
  Sex: Male

DRUGS (1)
  1. BAMLANIVIMAB 700MG/ETESEVIMAB 1400 MG [Suspect]
     Active Substance: BAMLANIVIMAB\ETESEVIMAB
     Indication: COVID-19
     Dates: start: 20210426, end: 20210426

REACTIONS (5)
  - Hypoxia [None]
  - Dyspnoea [None]
  - Pyrexia [None]
  - Tachypnoea [None]
  - Infusion related reaction [None]

NARRATIVE: CASE EVENT DATE: 20210426
